FAERS Safety Report 8062031-2 (Version None)
Quarter: 2012Q1

REPORT INFORMATION
  Report Type: 
  Country: None (occurrence: None)
  Receive Date: 20120118
  Receipt Date: 20120109
  Transmission Date: 20120608
  Serious: Yes (Death)
  Sender: FDA-Public Use
  Company Number: JPI-P-003151

PATIENT
  Age: 49 Year
  Sex: Female

DRUGS (5)
  1. XYREM [Suspect]
     Indication: PRODUCT USED FOR UNKNOWN INDICATION
     Dosage: ORAL
     Route: 048
  2. OXYCODONE HCL [Concomitant]
  3. UNSPECIFIED MEDICATIONS [Concomitant]
  4. OXYCODONE HCL [Concomitant]
  5. UNSPECIFIED MEDICATIONS FOR HIGH BLOOD PRESSURE [Concomitant]

REACTIONS (2)
  - MEMORY IMPAIRMENT [None]
  - DEPRESSION [None]
